FAERS Safety Report 5135951-6 (Version None)
Quarter: 2006Q4

REPORT INFORMATION
  Report Type: 
  Country: None (occurrence: None)
  Receive Date: 20061020
  Receipt Date: 20061011
  Transmission Date: 20070319
  Serious: Yes (Hospitalization)
  Sender: FDA-Public Use
  Company Number: 2006124366

PATIENT
  Age: 60 Year
  Sex: Female

DRUGS (11)
  1. EPIRUBICIN [Suspect]
     Indication: BREAST CANCER
     Dosage: (294 MG, 2 IN 1 WK), INTRAVENOUS
     Route: 042
     Dates: start: 20050721, end: 20050824
  2. TAXOL [Suspect]
     Indication: BREAST CANCER
     Dosage: (414 MG, 2 IN 1 WK), INTRAVENOUS
     Route: 042
     Dates: start: 20050907, end: 20051005
  3. CYCLOPHOSPHAMIDE [Suspect]
     Indication: BREAST CANCER
     Dosage: (2 IN 1 WK), INTRAVENOUS
     Route: 042
     Dates: start: 20051019, end: 20051116
  4. ARANESP [Concomitant]
  5. NEULASTA [Concomitant]
  6. PLASTULEN N (FERROUS SULFATE, FOLIC ACID) [Concomitant]
  7. FORTECORTIN (DEXAMETHASONE) [Concomitant]
  8. ZOFRAN [Concomitant]
  9. EMEND [Concomitant]
  10. LORAZEPAM [Concomitant]
  11. MIRTAZAPINE [Concomitant]

REACTIONS (6)
  - CHILLS [None]
  - LEUKOPENIA [None]
  - MENTAL DISORDER [None]
  - PYREXIA [None]
  - RESTLESSNESS [None]
  - TACHYCARDIA [None]
